FAERS Safety Report 23873216 (Version 1)
Quarter: 2024Q2

REPORT INFORMATION
  Report Type: Report from Study
  Country: CN (occurrence: CN)
  Receive Date: 20240520
  Receipt Date: 20240520
  Transmission Date: 20240716
  Serious: Yes (Hospitalization, Other)
  Sender: FDA-Public Use
  Company Number: CN-Accord-425465

PATIENT

DRUGS (4)
  1. FLUOROURACIL [Suspect]
     Active Substance: FLUOROURACIL
     Indication: Hepatocellular carcinoma
     Dosage: BOLUS INJECTION, FOLLOWED BY ARTERIAL INFUSION OF 2400 MG/M2 FOR 46 H, 3 WEEKS AS A CYCLE
  2. OXALIPLATIN [Suspect]
     Active Substance: OXALIPLATIN
     Indication: Hepatocellular carcinoma
     Dosage: 85 MG/M2 FOR 2 H
  3. LEUCOVORIN CALCIUM [Suspect]
     Active Substance: LEUCOVORIN CALCIUM
     Indication: Hepatocellular carcinoma
     Dosage: 400 MG/M2 WAS GIVEN BY ARTERIAL INFUSION FOR 2 H
  4. LENVATINIB [Suspect]
     Active Substance: LENVATINIB
     Indication: Hepatocellular carcinoma
     Dosage: 12 MG FOR BODY WEIGHT GREATER THAN60 KG, 8 MG FOR BODY WEIGHT+LT;60 KG
     Route: 048

REACTIONS (1)
  - Abdominal pain [Unknown]
